FAERS Safety Report 8186465-0 (Version None)
Quarter: 2012Q1

REPORT INFORMATION
  Report Type: 
  Country: None (occurrence: None)
  Receive Date: 20120302
  Receipt Date: 20120302
  Transmission Date: 20120608
  Serious: Yes (Other)
  Sender: FDA-Public Use
  Company Number: None

PATIENT
  Sex: Female
  Weight: 63.6 kg

DRUGS (2)
  1. ZOLOFT [Suspect]
     Indication: DEPRESSION
     Dosage: QD PO 1 MONTH/DOUBLED DOSE LAST WEEK
     Route: 048
  2. KEFLEX [Suspect]
     Indication: URINARY TRACT INFECTION
     Dosage: PO
     Route: 048

REACTIONS (4)
  - VISION BLURRED [None]
  - CORNEAL OPACITY [None]
  - MYDRIASIS [None]
  - TOXICITY TO VARIOUS AGENTS [None]
